FAERS Safety Report 4909102-4 (Version None)
Quarter: 2006Q1

REPORT INFORMATION
  Report Type: 
  Country: None (occurrence: None)
  Receive Date: 20060208
  Receipt Date: 20060208
  Transmission Date: 20060701
  Serious: Yes (Life-Threatening, Hospitalization)
  Sender: FDA-Public Use
  Company Number: None

PATIENT
  Age: 6 Year
  Sex: Male
  Weight: 27.2158 kg

DRUGS (3)
  1. ADVAIR DISKUS 100/50 [Suspect]
     Indication: ASTHMA
     Dosage: 150/50 Q 12 HR INHALER
     Dates: start: 20031101, end: 20051101
  2. ADVAIR DISKUS 250/50 [Suspect]
     Dosage: 250/50 Q 12 HR INHALER
     Dates: start: 20051101, end: 20060206
  3. ALBUTEROL [Concomitant]

REACTIONS (2)
  - ASTHMA [None]
  - DRUG INEFFECTIVE [None]
